FAERS Safety Report 19933762 (Version 1)
Quarter: 2021Q4

REPORT INFORMATION
  Report Type: Spontaneous
  Country: US (occurrence: US)
  Receive Date: 20211008
  Receipt Date: 20211008
  Transmission Date: 20220303
  Serious: Yes (Other)
  Sender: FDA-Public Use
  Company Number: US-GSKCCFUS-CASE-01182139_AE-69213

PATIENT
  Sex: Female

DRUGS (2)
  1. NUCALA [Suspect]
     Active Substance: MEPOLIZUMAB
     Indication: Asthma
     Dosage: UNK
     Route: 058
  2. NUCALA [Suspect]
     Active Substance: MEPOLIZUMAB
     Indication: Asthma
     Route: 058

REACTIONS (5)
  - Disability [Not Recovered/Not Resolved]
  - Device use error [Unknown]
  - Underdose [Unknown]
  - Accidental exposure to product [Not Recovered/Not Resolved]
  - Cancer surgery [Unknown]
